FAERS Safety Report 13578102 (Version 2)
Quarter: 2017Q3

REPORT INFORMATION
  Report Type: Spontaneous
  Country: FR (occurrence: FR)
  Receive Date: 20170524
  Receipt Date: 20170804
  Transmission Date: 20171127
  Serious: Yes (Hospitalization)
  Sender: FDA-Public Use
  Company Number: FR-ABBVIE-17K-056-1984989-00

PATIENT
  Age: 71 Year
  Sex: Male
  Weight: 57 kg

DRUGS (1)
  1. DUODOPA [Suspect]
     Active Substance: CARBIDOPA\LEVODOPA
     Indication: PARKINSON^S DISEASE
     Dosage: FROM 7 AM TO 4 PM: 5.5?FROM 2 PM TO 10 PM: 6.7
     Route: 050
     Dates: start: 20170329

REACTIONS (4)
  - Osteoarthropathy [Not Recovered/Not Resolved]
  - Persecutory delusion [Recovered/Resolved]
  - Malnutrition [Recovered/Resolved]
  - Weight decreased [Recovered/Resolved]

NARRATIVE: CASE EVENT DATE: 2017
